FAERS Safety Report 8377991-X (Version None)
Quarter: 2012Q2

REPORT INFORMATION
  Report Type: 
  Country: None (occurrence: None)
  Receive Date: 20120522
  Receipt Date: 20120227
  Transmission Date: 20120825
  Serious: Yes (Other)
  Sender: FDA-Public Use
  Company Number: US-JNJFOC-20120213726

PATIENT
  Sex: Male
  Weight: 79.38 kg

DRUGS (13)
  1. KEPPRA [Concomitant]
     Indication: CONVULSION
     Route: 048
     Dates: start: 20090801
  2. XARELTO [Suspect]
     Indication: CEREBROVASCULAR ACCIDENT PROPHYLAXIS
     Route: 048
     Dates: start: 20120309, end: 20120323
  3. METOPROLOL [Concomitant]
     Indication: BLOOD PRESSURE
     Dates: start: 20080901
  4. ASPIRIN [Concomitant]
     Indication: ANTICOAGULANT THERAPY
     Route: 048
     Dates: start: 20080901
  5. XARELTO [Suspect]
     Indication: THROMBOSIS PROPHYLAXIS
     Route: 048
     Dates: start: 20120309, end: 20120323
  6. ZINC SULFATE [Concomitant]
     Indication: PRODUCT USED FOR UNKNOWN INDICATION
     Route: 065
     Dates: start: 20080901
  7. ASCORBIC ACID [Concomitant]
     Indication: MEDICAL DIET
     Route: 048
     Dates: start: 20080901
  8. TRENTAL [Concomitant]
     Indication: RED BLOOD CELL COUNT ABNORMAL
     Route: 048
     Dates: start: 20111201
  9. BACLOFEN [Concomitant]
     Route: 048
     Dates: start: 20101201
  10. NEXIUM [Concomitant]
     Indication: DYSPEPSIA
     Route: 048
     Dates: start: 20080901
  11. WARFARIN SODIUM [Concomitant]
     Indication: ANTICOAGULANT THERAPY
     Route: 048
     Dates: start: 20080701
  12. TPN [Concomitant]
     Indication: MEDICAL DIET
     Route: 048
     Dates: start: 20080901
  13. DIGOXIN [Concomitant]
     Indication: CARDIAC DISORDER
     Route: 048
     Dates: start: 20080901

REACTIONS (2)
  - BLOOD CREATININE INCREASED [None]
  - GINGIVAL BLEEDING [None]
